FAERS Safety Report 10559839 (Version 1)
Quarter: 2014Q4

REPORT INFORMATION
  Report Type: Spontaneous
  Country: IT (occurrence: IT)
  Receive Date: 20141103
  Receipt Date: 20141103
  Transmission Date: 20150529
  Serious: Yes (Other)
  Sender: FDA-Public Use
  Company Number: IT-JNJFOC-20141015128

PATIENT
  Sex: Male

DRUGS (3)
  1. BISPHOSPHONATES [Concomitant]
     Active Substance: UNSPECIFIED INGREDIENT
     Route: 065
  2. PREDNISONE. [Suspect]
     Active Substance: PREDNISONE
     Indication: PROSTATE CANCER METASTATIC
     Route: 048
  3. ABIRATERONE ACETATE [Suspect]
     Active Substance: ABIRATERONE ACETATE
     Indication: PROSTATE CANCER METASTATIC
     Route: 048

REACTIONS (20)
  - Constipation [Unknown]
  - Fatigue [Unknown]
  - Vomiting [Unknown]
  - Hypertension [Unknown]
  - Oedema peripheral [Unknown]
  - Urinary tract infection [Unknown]
  - Back pain [Unknown]
  - Disease progression [Unknown]
  - Diarrhoea [Unknown]
  - Haematuria [Unknown]
  - Nausea [Unknown]
  - Arthralgia [Unknown]
  - Dyspnoea [Unknown]
  - Abdominal pain [Unknown]
  - Thrombocytopenia [Unknown]
  - Bone pain [Unknown]
  - Neutropenia [Unknown]
  - Hypokalaemia [Unknown]
  - Liver function test abnormal [Unknown]
  - Anaemia [Unknown]
